FAERS Safety Report 14151839 (Version 1)
Quarter: 2017Q4

REPORT INFORMATION
  Report Type: Report from Study
  Country: ES (occurrence: ES)
  Receive Date: 20171102
  Receipt Date: 20171102
  Transmission Date: 20180321
  Serious: Yes (Other)
  Sender: FDA-Public Use
  Company Number: ES-ROCHE-1945419

PATIENT

DRUGS (9)
  1. MYCOPHENOLATE MOFETIL. [Suspect]
     Active Substance: MYCOPHENOLATE MOFETIL
     Indication: IMMUNOSUPPRESSION
     Route: 048
  2. PREDNISONE. [Suspect]
     Active Substance: PREDNISONE
     Dosage: 5-10
     Route: 048
  3. PREDNISONE. [Suspect]
     Active Substance: PREDNISONE
     Indication: IMMUNOSUPPRESSION
     Route: 048
  4. SULFAMETHOXAZOLE/TRIMETHOPRIM [Concomitant]
     Active Substance: SULFAMETHOXAZOLE\TRIMETHOPRIM
     Dosage: 160/800 MG, 3 DAYS PER WEEK
     Route: 048
  5. AMOXICILLIN/CLAVULANATE [Concomitant]
     Active Substance: AMOXICILLIN\CLAVULANATE POTASSIUM
     Indication: INFECTION PROPHYLAXIS
     Dosage: 1G/200MG
     Route: 042
  6. NYSTATIN. [Concomitant]
     Active Substance: NYSTATIN
     Dosage: 500000 UNITS
     Route: 048
  7. CYCLOSPORINE A [Suspect]
     Active Substance: CYCLOSPORINE
     Indication: IMMUNOSUPPRESSION
     Dosage: 6-8 MG/KG/DAY
     Route: 048
  8. CYCLOSPORINE A [Suspect]
     Active Substance: CYCLOSPORINE
     Dosage: 2-3 MG/KG/DAY
     Route: 048
  9. METHYLPREDNISOLONE. [Suspect]
     Active Substance: METHYLPREDNISOLONE
     Indication: IMMUNOSUPPRESSION
     Dosage: 250-500 MG
     Route: 040

REACTIONS (21)
  - Proteus infection [Unknown]
  - Salmonellosis [Unknown]
  - Ulcerative gastritis [Unknown]
  - Bacteraemia [Recovered/Resolved]
  - Escherichia urinary tract infection [Unknown]
  - Skin infection [Unknown]
  - Urinary tract infection enterococcal [Unknown]
  - Pseudomonas infection [Unknown]
  - Klebsiella infection [Unknown]
  - Erosive duodenitis [Unknown]
  - Staphylococcal infection [Unknown]
  - Herpes simplex [Unknown]
  - Candida infection [Unknown]
  - Cytomegalovirus syndrome [Unknown]
  - Oral herpes [Unknown]
  - Infection [Unknown]
  - Pyelonephritis [Unknown]
  - Cytomegalovirus oesophagitis [Unknown]
  - Cytomegalovirus infection [Unknown]
  - Varicella zoster virus infection [Unknown]
  - Soft tissue infection [Unknown]
